FAERS Safety Report 5385234-4 (Version None)
Quarter: 2007Q3

REPORT INFORMATION
  Report Type: 
  Country: None (occurrence: None)
  Receive Date: 20070706
  Receipt Date: 20070706
  Transmission Date: 20080115
  Serious: Yes (Hospitalization, Other)
  Sender: FDA-Public Use
  Company Number: None

PATIENT
  Age: 18 Year
  Sex: Female
  Weight: 52.1637 kg

DRUGS (1)
  1. CORICIDIN [Suspect]
     Indication: DRUG ABUSER
     Dosage: PO
     Route: 048
     Dates: start: 20070101, end: 20070705

REACTIONS (2)
  - ALCOHOL USE [None]
  - DRUG ABUSER [None]
